FAERS Safety Report 10335331 (Version 2)
Quarter: 2014Q3

REPORT INFORMATION
  Report Type: Spontaneous
  Country: US (occurrence: US)
  Receive Date: 20140723
  Receipt Date: 20140723
  Transmission Date: 20150326
  Serious: No
  Sender: FDA-Public Use
  Company Number: US-UNITED THERAPEUTICS-UTC-042631

PATIENT
  Sex: Male
  Weight: 81.64 kg

DRUGS (2)
  1. REVATIO [Concomitant]
     Active Substance: SILDENAFIL CITRATE
  2. REMODULIN [Suspect]
     Active Substance: TREPROSTINIL
     Dosage: 0.019 UG/KG/MIN
     Route: 058
     Dates: start: 20111103

REACTIONS (2)
  - Infusion site pain [Not Recovered/Not Resolved]
  - Oropharyngeal pain [Unknown]
